FAERS Safety Report 15278410 (Version 10)
Quarter: 2021Q2

REPORT INFORMATION
  Report Type: Report from Study
  Country: CA (occurrence: CA)
  Receive Date: 20180814
  Receipt Date: 20210417
  Transmission Date: 20210716
  Serious: Yes (Hospitalization, Other)
  Sender: FDA-Public Use
  Company Number: PHHY2015CA117617

PATIENT
  Age: 68 Year
  Sex: Female

DRUGS (8)
  1. SANDOSTATIN LAR DEPOT [Suspect]
     Active Substance: OCTREOTIDE ACETATE
     Indication: NEUROENDOCRINE TUMOUR
     Dosage: 20 MG, QMO
     Route: 030
     Dates: start: 20150923
  2. SANDOSTATIN LAR DEPOT [Suspect]
     Active Substance: OCTREOTIDE ACETATE
     Dosage: 30 MG, QMO
     Route: 030
     Dates: start: 201601
  3. BISOPROLOL [Suspect]
     Active Substance: BISOPROLOL
     Indication: PRODUCT USED FOR UNKNOWN INDICATION
     Dosage: UNK
     Route: 065
  4. XARELTO [Concomitant]
     Active Substance: RIVAROXABAN
     Indication: PRODUCT USED FOR UNKNOWN INDICATION
     Route: 065
  5. SANDOSTATIN LAR DEPOT [Suspect]
     Active Substance: OCTREOTIDE ACETATE
     Dosage: 30 MG, QMO
     Route: 030
     Dates: start: 20150923
  6. SANDOSTATIN [Suspect]
     Active Substance: OCTREOTIDE ACETATE
     Dosage: 150 UG, TID (FOR 14 DAYS)
     Route: 058
     Dates: start: 20150923
  7. SANDOSTATIN [Suspect]
     Active Substance: OCTREOTIDE ACETATE
  8. SANDOSTATIN [Suspect]
     Active Substance: OCTREOTIDE ACETATE
     Indication: NEUROENDOCRINE TUMOUR
     Dosage: 150 UG, (TEST DOSE)
     Route: 058
     Dates: start: 20150922, end: 20150922

REACTIONS (28)
  - Pain [Unknown]
  - Vomiting [Unknown]
  - Dyspnoea [Unknown]
  - Blood pressure increased [Unknown]
  - Fall [Unknown]
  - Abdominal pain [Recovered/Resolved]
  - Headache [Unknown]
  - Arthralgia [Unknown]
  - Blood pressure decreased [Unknown]
  - Diarrhoea [Recovered/Resolved]
  - Injection site swelling [Unknown]
  - Vaccination site pain [Unknown]
  - Dizziness [Unknown]
  - Body temperature decreased [Unknown]
  - Tendon pain [Recovering/Resolving]
  - Bone pain [Unknown]
  - Injection site pain [Unknown]
  - Dysstasia [Unknown]
  - Palpitations [Unknown]
  - Asthenia [Recovering/Resolving]
  - Oedema peripheral [Unknown]
  - Faeces discoloured [Unknown]
  - Osteoarthritis [Unknown]
  - Upper limb fracture [Unknown]
  - Urinary tract infection [Recovered/Resolved]
  - Decreased appetite [Recovering/Resolving]
  - Spinal pain [Unknown]
  - Nausea [Unknown]

NARRATIVE: CASE EVENT DATE: 20150923
